FAERS Safety Report 9502039 (Version 3)
Quarter: 2013Q3

REPORT INFORMATION
  Report Type: Report from Study
  Country: GR (occurrence: GR)
  Receive Date: 20130905
  Receipt Date: 20130930
  Transmission Date: 20140515
  Serious: Yes (Hospitalization)
  Sender: FDA-Public Use
  Company Number: GR-AMGEN-GRCCT2013062203

PATIENT
  Age: 59 Year
  Sex: Male
  Weight: 75 kg

DRUGS (5)
  1. PANITUMUMAB [Suspect]
     Indication: GASTRIC CANCER
     Dosage: 6 MG/KG, UNK
     Route: 042
     Dates: start: 20120504
  2. DOCETAXEL [Concomitant]
     Dosage: 75 MG, Q2WK
     Route: 042
     Dates: start: 20120504, end: 20120704
  3. CDDP [Concomitant]
     Dosage: 75 MG, Q2WK
     Route: 042
     Dates: start: 20120504, end: 20120704
  4. LEUCOVORIN [Concomitant]
     Dosage: 760 MG, Q2WK
     Route: 042
     Dates: start: 20120504, end: 20120704
  5. 5-FLUOROURACIL [Concomitant]
     Dosage: UNK UNK, Q2WK
     Route: 042
     Dates: start: 20120504, end: 20120704

REACTIONS (1)
  - Neutropenia [Recovered/Resolved]
